FAERS Safety Report 18400443 (Version 1)
Quarter: 2020Q4

REPORT INFORMATION
  Report Type: Spontaneous
  Country: CN (occurrence: CN)
  Receive Date: 20201019
  Receipt Date: 20201019
  Transmission Date: 20210114
  Serious: Yes (Other)
  Sender: FDA-Public Use
  Company Number: CN-BAXTER-2020BAX021218

PATIENT
  Age: 55 Year
  Sex: Female
  Weight: 46 kg

DRUGS (4)
  1. ENDOXAN [Suspect]
     Active Substance: CYCLOPHOSPHAMIDE
     Indication: BREAST CANCER FEMALE
     Dosage: CYCLOPHOSPHAMIDE + SODIUM CHLORIDE (250 ML), AT A RATE OF 125 ML/H
     Route: 041
     Dates: start: 20200903, end: 20200903
  2. 0.9% SODIUM CHLORIDE INJECTION [Suspect]
     Active Substance: SODIUM CHLORIDE
     Indication: MEDICATION DILUTION
     Dosage: SODIUM CHLORIDE +EPIRUBICIN HYDROCHLORIDE (150 MG), AT A RATE OF 125 ML/H
     Route: 041
     Dates: start: 20200903, end: 20200903
  3. 0.9% SODIUM CHLORIDE INJECTION [Suspect]
     Active Substance: SODIUM CHLORIDE
     Dosage: SODIUM CHLORIDE + CYCLOPHOSPHAMIDE (0.9 G), AT A RATE OF 125 ML/H
     Route: 041
     Dates: start: 20200903, end: 20200903
  4. EPIRUBICIN HYDROCHLORIDE. [Suspect]
     Active Substance: EPIRUBICIN HYDROCHLORIDE
     Indication: BREAST CANCER FEMALE
     Dosage: EPIRUBICIN HYDROCHLORIDE + SODIUM CHLORIDE (250 ML), AT A RATE OF 125ML/H
     Route: 041
     Dates: start: 20200903, end: 20200903

REACTIONS (1)
  - White blood cell count decreased [Recovered/Resolved]

NARRATIVE: CASE EVENT DATE: 20200907
